FAERS Safety Report 4314757-1 (Version None)
Quarter: 2004Q1

REPORT INFORMATION
  Report Type: 
  Country: None (occurrence: None)
  Receive Date: 20040308
  Receipt Date: 20040226
  Transmission Date: 20041129
  Serious: Yes (Hospitalization)
  Sender: FDA-Public Use
  Company Number: 2004EU000432

PATIENT
  Age: 55 Year
  Sex: Male

DRUGS (6)
  1. PROGRAF [Suspect]
     Indication: RENAL TRANSPLANT
     Dates: start: 19990901
  2. CELLCEPT [Concomitant]
  3. METHYLPREDNISOLONE [Concomitant]
  4. VANCOMYCIN [Concomitant]
  5. IMIPENEM (IMIPENEM) [Concomitant]
  6. ROXITHROMYCIN (ROXITHROMYCIN) [Concomitant]

REACTIONS (7)
  - ABDOMINAL PAIN LOWER [None]
  - GRAFT DYSFUNCTION [None]
  - HAEMATOMA [None]
  - LYMPHOPENIA [None]
  - MYCOTIC ANEURYSM [None]
  - NOCARDIOSIS [None]
  - PERINEPHRIC ABSCESS [None]
